FAERS Safety Report 9139401 (Version 2)
Quarter: 2013Q1

REPORT INFORMATION
  Report Type: Report from Study
  Country: DE (occurrence: DE)
  Receive Date: 20130305
  Receipt Date: 20130319
  Transmission Date: 20140127
  Serious: Yes (Hospitalization)
  Sender: FDA-Public Use
  Company Number: PHHO2013DE003392

PATIENT
  Age: 36 Year
  Sex: Male
  Weight: 75 kg

DRUGS (5)
  1. MYCOPHENOLIC ACID [Suspect]
     Indication: PANCREAS TRANSPLANT
     Dosage: 720 MG, BID
     Route: 048
     Dates: start: 20121206, end: 20130224
  2. PROGRAF [Concomitant]
     Indication: PANCREAS TRANSPLANT
     Dosage: 4.5 MG, BID
     Route: 048
     Dates: start: 20121206, end: 20130225
  3. PROGRAF [Concomitant]
     Dosage: 3 MG/DAY
     Route: 048
     Dates: start: 20130226
  4. PREDNISOLON [Concomitant]
     Indication: PANCREAS TRANSPLANT
     Dosage: 5 MG, UNK
     Route: 048
     Dates: start: 20121207, end: 20130224
  5. PREDNISOLON [Concomitant]
     Dosage: 5 MG/DAY
     Route: 048
     Dates: start: 20130226

REACTIONS (1)
  - Gastroenteritis [Recovered/Resolved]
